FAERS Safety Report 21457629 (Version 1)
Quarter: 2022Q4

REPORT INFORMATION
  Report Type: Spontaneous
  Country: US (occurrence: US)
  Receive Date: 20221014
  Receipt Date: 20221014
  Transmission Date: 20230113
  Serious: No
  Sender: FDA-Public Use
  Company Number: US-SANOFI-01314063

PATIENT
  Sex: Female

DRUGS (2)
  1. TOUJEO [Suspect]
     Active Substance: INSULIN GLARGINE
     Indication: Diabetes mellitus
     Dosage: 27 U QD
  2. TOUJEO [Suspect]
     Active Substance: INSULIN GLARGINE
     Dosage: 25 U

REACTIONS (1)
  - Incorrect dose administered [Unknown]
